FAERS Safety Report 18334322 (Version 2)
Quarter: 2020Q4

REPORT INFORMATION
  Report Type: Spontaneous
  Country: JP (occurrence: JP)
  Receive Date: 20201001
  Receipt Date: 20201009
  Transmission Date: 20210113
  Serious: Yes (Other)
  Sender: FDA-Public Use
  Company Number: JP-MYLANLABS-2020M1082890

PATIENT
  Age: 58 Year
  Sex: Male

DRUGS (7)
  1. LOXOPROFEN [Suspect]
     Active Substance: LOXOPROFEN
     Indication: PYREXIA
     Route: 065
     Dates: start: 202003
  2. PIPERACILLIN/TAZOBACTAM [Suspect]
     Active Substance: PIPERACILLIN SODIUM\TAZOBACTAM SODIUM
     Indication: COVID-19 PNEUMONIA
     Dosage: 4.5 GRAM, Q8H, TAZOBACTAM PIPERACILLIN 4.5 G EVERY 8 HOURS
     Route: 042
     Dates: start: 202003, end: 202003
  3. AZITHROMYCIN ANHYDROUS. [Concomitant]
     Active Substance: AZITHROMYCIN ANHYDROUS
     Indication: PNEUMONIA
     Dosage: 500 MILLIGRAM, QD, AZITHROMYCIN 500 MG EVERY 24 HOURS
     Route: 065
     Dates: start: 202003, end: 202003
  4. HEPARIN [Concomitant]
     Active Substance: HEPARIN SODIUM
     Indication: EMBOLISM VENOUS
     Dosage: RECEIVED CONTINUOUS INTRAVENOUS HEPARIN INFUSIONS
     Route: 042
     Dates: start: 202003, end: 202003
  5. PREDNISOLONE. [Concomitant]
     Active Substance: PREDNISOLONE
     Indication: CHRONIC OBSTRUCTIVE PULMONARY DISEASE
     Dosage: 30 MILLIGRAM, QD
     Route: 065
     Dates: start: 202003
  6. FAVIPIRAVIR [Suspect]
     Active Substance: FAVIPIRAVIR
     Indication: COVID-19 PNEUMONIA
     Dosage: 1800 MILLIGRAM, ON THE FIRST DAY OF TREATMENT, 1800 MG WAS ADMINISTERED EVERY 12 HOURS
     Route: 048
     Dates: start: 202003, end: 202003
  7. FAVIPIRAVIR [Suspect]
     Active Substance: FAVIPIRAVIR
     Dosage: 800 MILLIGRAM,FROM THE SECOND DAY, 800 MG EVERY 12 HOURS
     Route: 048
     Dates: start: 202003, end: 202003

REACTIONS (2)
  - Off label use [Unknown]
  - Drug ineffective [Unknown]

NARRATIVE: CASE EVENT DATE: 202003
